FAERS Safety Report 6827699-4 (Version None)
Quarter: 2010Q3

REPORT INFORMATION
  Report Type: 
  Country: None (occurrence: None)
  Receive Date: 20100709
  Receipt Date: 20100630
  Transmission Date: 20110219
  Serious: Yes (Hospitalization, Disabling, Other)
  Sender: FDA-Public Use
  Company Number: HQWYE244728JUL03

PATIENT
  Sex: Female
  Weight: 53.12 kg

DRUGS (5)
  1. PREMPRO [Suspect]
     Dosage: 0.625MG/2.5MG DAILY
     Route: 048
     Dates: start: 19991023, end: 20010731
  2. CARISOPRODOL [Concomitant]
  3. SPIRONOLACTONE [Concomitant]
  4. PREVACID [Concomitant]
     Indication: DYSPEPSIA
     Route: 048
  5. TIMOLOL MALEATE [Concomitant]
     Dosage: DAILY
     Route: 047

REACTIONS (1)
  - BREAST CANCER METASTATIC [None]
